FAERS Safety Report 7939023-4 (Version None)
Quarter: 2011Q4

REPORT INFORMATION
  Report Type: 
  Country: None (occurrence: None)
  Receive Date: 20111124
  Receipt Date: 20111118
  Transmission Date: 20120403
  Serious: Yes (Hospitalization)
  Sender: FDA-Public Use
  Company Number: IT-PFIZER INC-2011284035

PATIENT
  Age: 48 Year
  Sex: Female

DRUGS (1)
  1. CRIZOTINIB [Suspect]
     Indication: LUNG ADENOCARCINOMA METASTATIC
     Dosage: 200 MG, 2X/DAY (EVERY 12 HOURS)
     Route: 048
     Dates: start: 20110105

REACTIONS (9)
  - HAEMOPTYSIS [None]
  - LEUKOPENIA [None]
  - HYPOFIBRINOGENAEMIA [None]
  - ASTHENIA [None]
  - OEDEMA PERIPHERAL [None]
  - HYPOALBUMINAEMIA [None]
  - ALANINE AMINOTRANSFERASE INCREASED [None]
  - CONSTIPATION [None]
  - THROMBOCYTOPENIA [None]
